FAERS Safety Report 6050671-1 (Version None)
Quarter: 2009Q1

REPORT INFORMATION
  Report Type: 
  Country: None (occurrence: None)
  Receive Date: 20090121
  Receipt Date: 20090102
  Transmission Date: 20090719
  Serious: Yes (Life-Threatening, Hospitalization)
  Sender: FDA-Public Use
  Company Number: 001#1#2008-00652

PATIENT
  Sex: Male
  Weight: 97 kg

DRUGS (5)
  1. PROSTAVASIN /00501501/ (PROSTAVASIN) [Suspect]
     Indication: PERIPHERAL ARTERIAL OCCLUSIVE DISEASE
     Dosage: (20 UG BID INTRAVENOUS) (NOT OTHERWISE SPECIFIED)
     Route: 042
     Dates: start: 20081024, end: 20081028
  2. HUMALOG [Concomitant]
  3. TORSEMIDE [Concomitant]
  4. SIMVASTATIN [Concomitant]
  5. AMLODIPINE W/VALSARTAN [Concomitant]

REACTIONS (4)
  - PULMONARY OEDEMA [None]
  - PULMONARY TOXICITY [None]
  - RENAL FAILURE ACUTE [None]
  - RESPIRATORY FAILURE [None]
